FAERS Safety Report 15280201 (Version 1)
Quarter: 2018Q3

REPORT INFORMATION
  Report Type: Spontaneous
  Country: US (occurrence: US)
  Receive Date: 20180815
  Receipt Date: 20180815
  Transmission Date: 20181010
  Serious: Yes (Other)
  Sender: FDA-Public Use
  Company Number: US-CONCORDIA PHARMACEUTICALS INC.-GSH201808-002975

PATIENT
  Sex: Female

DRUGS (3)
  1. BREXPIPRAZOLE [Suspect]
     Active Substance: BREXPIPRAZOLE
  2. ARMODAFINIL. [Suspect]
     Active Substance: ARMODAFINIL
  3. TRANYLCYPROMINE [Suspect]
     Active Substance: TRANYLCYPROMINE

REACTIONS (3)
  - Contraindicated product administered [Unknown]
  - Musculoskeletal stiffness [Unknown]
  - Hypertensive crisis [Unknown]
